FAERS Safety Report 9746323 (Version 3)
Quarter: 2014Q1

REPORT INFORMATION
  Report Type: Spontaneous
  Country: US (occurrence: US)
  Receive Date: 20131211
  Receipt Date: 20140212
  Transmission Date: 20141002
  Serious: Yes (Hospitalization, Other)
  Sender: FDA-Public Use
  Company Number: US-GLAXOSMITHKLINE-A0988488A

PATIENT
  Age: 48 Year
  Sex: Female
  Weight: 113.5 kg

DRUGS (19)
  1. BENLYSTA [Suspect]
     Indication: SYSTEMIC LUPUS ERYTHEMATOSUS
     Route: 042
     Dates: start: 20110801, end: 20120718
  2. AMITRIPTYLINE [Concomitant]
     Dosage: 50MG PER DAY
  3. CARDIZEM [Concomitant]
     Dosage: 300MG PER DAY
  4. VOLTAREN [Concomitant]
     Dosage: 75MG PER DAY
  5. LASIX [Concomitant]
     Dosage: 20MG PER DAY
  6. PLAQUENIL [Concomitant]
     Dosage: 200MG PER DAY
  7. POTASSIUM [Concomitant]
     Dosage: 10MEQ PER DAY
  8. PREDNISONE [Concomitant]
     Dosage: 5MG PER DAY
  9. PROTONIX [Concomitant]
     Dosage: 20MG PER DAY
  10. RESTASIS [Concomitant]
  11. TRAMADOL [Concomitant]
  12. FLEXERIL [Concomitant]
  13. NORCO [Concomitant]
  14. FENTANYL [Concomitant]
  15. FORTEO [Concomitant]
  16. TOPAMAX [Concomitant]
     Dosage: 25MG THREE TIMES PER DAY
  17. BENADRYL [Concomitant]
  18. SOLUMEDROL [Concomitant]
  19. SPIRONOLACTONE [Concomitant]

REACTIONS (8)
  - Latent tuberculosis [Not Recovered/Not Resolved]
  - Fluid retention [Not Recovered/Not Resolved]
  - Dyspnoea [Unknown]
  - Malaise [Unknown]
  - Pain in extremity [Not Recovered/Not Resolved]
  - Hypokalaemia [Not Recovered/Not Resolved]
  - Arrhythmia [Not Recovered/Not Resolved]
  - Pain [Unknown]
